FAERS Safety Report 8595848-6 (Version None)
Quarter: 2012Q3

REPORT INFORMATION
  Report Type: 
  Country: None (occurrence: None)
  Receive Date: 20120815
  Receipt Date: 19940418
  Transmission Date: 20120928
  Serious: Yes (Death, Hospitalization)
  Sender: FDA-Public Use
  Company Number: US-ROCHE-1098872

PATIENT
  Sex: Male

DRUGS (3)
  1. ACTIVASE [Suspect]
     Indication: ACUTE MYOCARDIAL INFARCTION
  2. NITROGLYCERIN [Concomitant]
  3. ASPIRIN [Concomitant]

REACTIONS (6)
  - CHEST DISCOMFORT [None]
  - VENTRICULAR TACHYCARDIA [None]
  - DEATH [None]
  - CHEST PAIN [None]
  - BRADYCARDIA [None]
  - HYPOTENSION [None]
